FAERS Safety Report 5696102-2 (Version None)
Quarter: 2008Q2

REPORT INFORMATION
  Report Type: 
  Country: None (occurrence: None)
  Receive Date: 20080407
  Receipt Date: 20080326
  Transmission Date: 20081010
  Serious: Yes (Hospitalization)
  Sender: FDA-Public Use
  Company Number: IT-ROCHE-555163

PATIENT
  Sex: Female

DRUGS (3)
  1. PEGASYS [Suspect]
     Indication: CHRONIC HEPATITIS
     Dosage: FORM: VIAL, FREQUENCY: 1 X WEEK.
     Route: 058
     Dates: start: 20080114, end: 20080201
  2. COPEGUS [Suspect]
     Indication: DRUG USE FOR UNKNOWN INDICATION
     Dosage: FREQUENCY REPORTED: 1 X OD
     Route: 048
     Dates: start: 20080114, end: 20080201
  3. PARACETAMOL [Concomitant]
     Route: 048

REACTIONS (4)
  - MALAISE [None]
  - NUCHAL RIGIDITY [None]
  - STARING [None]
  - VERTIGO [None]
